FAERS Safety Report 6988707-3 (Version None)
Quarter: 2010Q3

REPORT INFORMATION
  Report Type: 
  Country: None (occurrence: None)
  Receive Date: 20100916
  Receipt Date: 20100906
  Transmission Date: 20110219
  Serious: Yes (Hospitalization)
  Sender: FDA-Public Use
  Company Number: PHHY2010MX59342

PATIENT
  Sex: Female

DRUGS (2)
  1. GALVUS MET [Suspect]
     Indication: DIABETES MELLITUS
     Dosage: 1 TABLET (50/500 MG) DAILY
     Route: 048
     Dates: start: 20100201
  2. DIOVAN HCT [Suspect]
     Indication: HYPERTENSION
     Dosage: 1 TABLET (160/12.5MG) DAILY
     Route: 048
     Dates: start: 20100201

REACTIONS (1)
  - CEREBRAL ARTERY EMBOLISM [None]
